FAERS Safety Report 10989290 (Version 4)
Quarter: 2015Q4

REPORT INFORMATION
  Report Type: Report from Study
  Country: JP (occurrence: JP)
  Receive Date: 20150406
  Receipt Date: 20151219
  Transmission Date: 20160304
  Serious: Yes (Life-Threatening, Other)
  Sender: FDA-Public Use
  Company Number: JP-AMGEN-JPNCT2015032519

PATIENT
  Age: 70 Year
  Sex: Male
  Weight: 39 kg

DRUGS (8)
  1. DENOSUMAB [Suspect]
     Active Substance: DENOSUMAB
     Indication: METASTASES TO BONE
     Dosage: 120 MG, UNK
     Route: 058
     Dates: start: 20140327
  2. TAXOTERE [Concomitant]
     Active Substance: DOCETAXEL
     Dosage: 40 MG, QD
     Route: 065
     Dates: start: 20131218
  3. NEXIUM [Concomitant]
     Active Substance: ESOMEPRAZOLE MAGNESIUM
     Indication: GASTRIC ULCER
     Dosage: 20 MG, QD
     Route: 048
     Dates: start: 20141106
  4. DENOTAS [Concomitant]
     Active Substance: CALCIUM CARBONATE\CHOLECALCIFEROL\MAGNESIUM CARBONATE
     Dosage: 2 DF, QD
     Route: 048
     Dates: start: 20140515
  5. PROXAL [Concomitant]
     Dosage: UNK
     Route: 065
     Dates: start: 20150326
  6. PROSEXOL [Concomitant]
     Active Substance: ETHINYL ESTRADIOL
     Dosage: UNK
     Route: 065
     Dates: start: 20150326
  7. CASODEX [Concomitant]
     Active Substance: BICALUTAMIDE
     Dosage: UNK
     Route: 065
     Dates: start: 20150219, end: 20150326
  8. DECADRON [Concomitant]
     Active Substance: DEXAMETHASONE
     Indication: PROSTATE CANCER
     Dosage: 0.5 MG, BID
     Route: 048
     Dates: start: 20131216, end: 20140319

REACTIONS (4)
  - Gastric ulcer [Recovering/Resolving]
  - Rectal cancer [Recovering/Resolving]
  - Hypocalcaemia [Recovered/Resolved]
  - Osteonecrosis of jaw [Not Recovered/Not Resolved]

NARRATIVE: CASE EVENT DATE: 20141003
